FAERS Safety Report 9486266 (Version 5)
Quarter: 2013Q4

REPORT INFORMATION
  Report Type: Spontaneous
  Country: US (occurrence: US)
  Receive Date: 20130829
  Receipt Date: 20131118
  Transmission Date: 20140711
  Serious: Yes (Other)
  Sender: FDA-Public Use
  Company Number: US-BAYER-2013-103155

PATIENT
  Age: 57 Year
  Sex: Female
  Weight: 91 kg

DRUGS (1)
  1. BAYER ADVANCED ASPIRIN EXTRA STRENGTH [Suspect]
     Indication: BACK PAIN
     Dosage: UNK
     Route: 048
     Dates: start: 201303

REACTIONS (8)
  - Choking [None]
  - Chemical burn of gastrointestinal tract [None]
  - Oropharyngeal pain [None]
  - Throat irritation [Recovered/Resolved]
  - Tonsillar disorder [Not Recovered/Not Resolved]
  - Oropharyngeal discomfort [Not Recovered/Not Resolved]
  - Cough [Not Recovered/Not Resolved]
  - Haemoptysis [Recovered/Resolved]
